FAERS Safety Report 9340835 (Version 1)
Quarter: 2013Q2

REPORT INFORMATION
  Report Type: Spontaneous
  Country: IT (occurrence: IT)
  Receive Date: 20130610
  Receipt Date: 20130610
  Transmission Date: 20140414
  Serious: Yes (Hospitalization)
  Sender: FDA-Public Use
  Company Number: IT-TEVA-410561ISR

PATIENT
  Age: 70 Year
  Sex: Female

DRUGS (8)
  1. PACLITAXEL TEVA [Suspect]
     Indication: OVARIAN CANCER
     Dosage: 240 MILLIGRAM DAILY;
     Route: 041
     Dates: start: 20130603, end: 20130603
  2. LERCANIDIPINA [Concomitant]
     Dosage: 10 MILLIGRAM DAILY;
     Route: 048
  3. CLEXANE 4000 IU [Concomitant]
     Dosage: 1 DOSAGE FORMS DAILY;
  4. CONTRAMAL 100MG/ML [Concomitant]
     Dosage: 30 GTT DAILY; SOLUTION FOR ORAL DROPS. DAILY DOSE: 30 GTT
     Route: 048
  5. SOLDESAM 0,2% [Concomitant]
     Dosage: 32 GTT DAILY; SOLUTION FOR ORAL DROPS. DAILY DOSE: 32 GTT
     Route: 048
  6. ISOCOLAN 34,8 G [Concomitant]
  7. BUSCOPAN [Concomitant]
     Dosage: 1 DOSAGE FORMS DAILY;
     Route: 048
  8. LOBIVON 5MG [Concomitant]
     Dosage: 1 DOSAGE FORMS DAILY;
     Route: 048

REACTIONS (6)
  - Hypotension [Recovered/Resolved]
  - Dyspnoea [Recovered/Resolved]
  - Conjunctival hyperaemia [Recovered/Resolved]
  - Flushing [Recovered/Resolved]
  - Renal pain [Recovered/Resolved]
  - Chest discomfort [Recovered/Resolved]
